FAERS Safety Report 9957754 (Version 2)
Quarter: 2014Q1

REPORT INFORMATION
  Report Type: Report from Study
  Country: US (occurrence: US)
  Receive Date: 20140304
  Receipt Date: 20140304
  Transmission Date: 20141002
  Serious: Yes (Hospitalization)
  Sender: FDA-Public Use
  Company Number: US-ABBVIE-13P-163-1043772-00

PATIENT
  Age: 51 Year
  Sex: Male
  Weight: 113.5 kg

DRUGS (10)
  1. HUMIRA [Suspect]
     Indication: RHEUMATOID ARTHRITIS
     Route: 058
     Dates: start: 2008, end: 201207
  2. LISINOPRIL [Concomitant]
     Indication: HYPERTENSION
  3. HYDROCODONE [Concomitant]
     Indication: PRODUCT USED FOR UNKNOWN INDICATION
  4. OPANA [Concomitant]
     Indication: PRODUCT USED FOR UNKNOWN INDICATION
  5. STEROIDS [Concomitant]
     Indication: ASTHMA
  6. PREDNISONE [Concomitant]
     Indication: ASTHMA
     Dosage: 20-40MG DAILY
     Dates: start: 201206
  7. ALBUTEROL [Concomitant]
     Indication: ASTHMA
     Dosage: NEB
  8. OPANA ER [Concomitant]
     Indication: BACK PAIN
     Dates: start: 201206
  9. PROTONIX [Concomitant]
     Indication: GASTROOESOPHAGEAL REFLUX DISEASE
     Dosage: DAILY
     Dates: start: 201206
  10. LORAZEPAM [Concomitant]
     Indication: ANXIETY
     Dates: start: 201206

REACTIONS (1)
  - Bronchopulmonary aspergillosis [Recovered/Resolved]
